FAERS Safety Report 11093775 (Version 1)
Quarter: 2015Q2

REPORT INFORMATION
  Report Type: Spontaneous
  Country: AU (occurrence: AU)
  Receive Date: 20150506
  Receipt Date: 20150506
  Transmission Date: 20150821
  Serious: Yes (Other)
  Sender: FDA-Public Use
  Company Number: AU-ASTRAZENECA-2015SE40859

PATIENT
  Age: 46 Year
  Sex: Male
  Weight: 83 kg

DRUGS (1)
  1. CRESTOR [Suspect]
     Active Substance: ROSUVASTATIN CALCIUM
     Dosage: 5 MICROGRAM 1 TIME
     Route: 048
     Dates: start: 20150306, end: 20150309

REACTIONS (8)
  - Hypoaesthesia [Unknown]
  - Abdominal pain [Unknown]
  - Fatigue [Unknown]
  - Nausea [Unknown]
  - Paraesthesia [Unknown]
  - Diarrhoea [Unknown]
  - Asthenia [Unknown]
  - Myalgia [Unknown]

NARRATIVE: CASE EVENT DATE: 20150311
